FAERS Safety Report 17441332 (Version 4)
Quarter: 2020Q2

REPORT INFORMATION
  Report Type: Report from Study
  Country: CA (occurrence: CA)
  Receive Date: 20200220
  Receipt Date: 20200615
  Transmission Date: 20200713
  Serious: Yes (Other)
  Sender: FDA-Public Use
  Company Number: CA-NALPROPION PHARMACEUTICALS INC.-2020-009622

PATIENT

DRUGS (14)
  1. SENOKOT [Concomitant]
     Active Substance: SENNOSIDES
     Indication: CONSTIPATION
     Dosage: 1 DOSAGE FORMS
  2. NEXIUM [Concomitant]
     Active Substance: ESOMEPRAZOLE MAGNESIUM
     Indication: GASTROINTESTINAL DISORDER
     Dosage: 2 IN 1 D
     Route: 048
  3. MOBICOX [Concomitant]
     Active Substance: MELOXICAM
     Indication: PAIN
     Dosage: PRN (AS NEEDED) (15 MG)
     Route: 048
  4. CONTRAVE [Suspect]
     Active Substance: BUPROPION HYDROCHLORIDE\NALTREXONE HYDROCHLORIDE
     Indication: WEIGHT CONTROL
     Dosage: STRENGTH: 90/8 MG (1 DOSAGE FORMS, 1 IN 1 D)
     Route: 048
     Dates: start: 20190820, end: 20200305
  5. CONTRAVE [Suspect]
     Active Substance: BUPROPION HYDROCHLORIDE\NALTREXONE HYDROCHLORIDE
     Dosage: SECOND ATTEMPT: STARTED APPROXIMATELY ON 20/MAY/2020 (1 DOSAGE FORMS, 2 IN 1 D)
     Route: 048
     Dates: start: 202005
  6. PENTASA [Concomitant]
     Active Substance: MESALAMINE
     Indication: CROHN^S DISEASE
     Dosage: 2 GM, 2 IN 1 D
     Route: 048
  7. CONTRAVE [Suspect]
     Active Substance: BUPROPION HYDROCHLORIDE\NALTREXONE HYDROCHLORIDE
     Dosage: SECOND ATTEMPT: STARTED APPROXIMATELY ON 25/MAR/2020 (1 DOSAGE FORMS, 1 IN 1 D)
     Route: 048
     Dates: start: 202003, end: 202005
  8. GAS-X [Concomitant]
     Active Substance: DIMETHICONE
     Indication: GASTROINTESTINAL DISORDER
     Dosage: 2 IN 1 D
  9. VYVANSE [Concomitant]
     Active Substance: LISDEXAMFETAMINE DIMESYLATE
     Indication: DISTURBANCE IN ATTENTION
     Dosage: 30 MG
     Route: 048
     Dates: start: 201912
  10. HUMIRA [Suspect]
     Active Substance: ADALIMUMAB
     Indication: CROHN^S DISEASE
     Dosage: UNK
     Route: 065
  11. STELARA [Concomitant]
     Active Substance: USTEKINUMAB
     Indication: CROHN^S DISEASE
     Dosage: MONTHLY
     Dates: start: 20200207
  12. STELARA [Concomitant]
     Active Substance: USTEKINUMAB
     Dosage: 1 IN 8 WK (ROUTE: INJECTION)
     Route: 050
     Dates: start: 20200131
  13. LAMOTRIGINE. [Concomitant]
     Active Substance: LAMOTRIGINE
     Indication: DIZZINESS
     Dosage: 100 MG, 2 IN 1 D
     Route: 048
     Dates: start: 2012
  14. RELPAX [Concomitant]
     Active Substance: ELETRIPTAN HYDROBROMIDE
     Indication: MIGRAINE
     Dosage: PRN (AS NEEDED) (40 MG)
     Route: 048

REACTIONS (12)
  - Localised infection [Recovering/Resolving]
  - Migraine [Not Recovered/Not Resolved]
  - Drug hypersensitivity [Recovering/Resolving]
  - Weight increased [Unknown]
  - Tension headache [Unknown]
  - Nail discolouration [Not Recovered/Not Resolved]
  - Influenza [Not Recovered/Not Resolved]
  - Lip swelling [Recovering/Resolving]
  - Drug titration error [Unknown]
  - Product prescribing error [Unknown]
  - Oral herpes [Recovering/Resolving]
  - Therapy interrupted [Unknown]

NARRATIVE: CASE EVENT DATE: 20200305
